FAERS Safety Report 5281153-2 (Version None)
Quarter: 2007Q1

REPORT INFORMATION
  Report Type: 
  Country: None (occurrence: None)
  Receive Date: 20070329
  Receipt Date: 20070326
  Transmission Date: 20070707
  Serious: Yes (Life-Threatening, Congenital Anomaly)
  Sender: FDA-Public Use
  Company Number: FR-MERCK-0703FRA00080

PATIENT
  Age: 0 Day
  Sex: Male
  Weight: 3 kg

DRUGS (3)
  1. COZAAR [Suspect]
     Indication: CONGESTIVE CARDIOMYOPATHY
     Route: 064
  2. FUROSEMIDE [Suspect]
     Indication: CONGESTIVE CARDIOMYOPATHY
     Route: 064
  3. DIGOXIN [Suspect]
     Indication: CONGESTIVE CARDIOMYOPATHY
     Route: 064

REACTIONS (9)
  - ANAL ATRESIA [None]
  - ANORECTAL DISORDER [None]
  - HYPERTROPHIC CARDIOMYOPATHY [None]
  - MULTIPLE CONGENITAL ABNORMALITIES [None]
  - OLIGOHYDRAMNIOS [None]
  - RENAL APLASIA [None]
  - SPINE MALFORMATION [None]
  - URINOMA [None]
  - VENTRICULAR SEPTAL DEFECT [None]
